FAERS Safety Report 9634644 (Version 1)
Quarter: 2013Q4

REPORT INFORMATION
  Report Type: Spontaneous
  Country: US (occurrence: US)
  Receive Date: 20131021
  Receipt Date: 20131021
  Transmission Date: 20140711
  Serious: No
  Sender: FDA-Public Use
  Company Number: US-PURDUE-USA-2013-0101477

PATIENT
  Age: 40 Year
  Sex: Male

DRUGS (16)
  1. BUTRANS [Suspect]
     Indication: PAIN
     Dosage: 10 MCG/HR, WEEKLY
     Route: 062
     Dates: start: 20130416
  2. OXYCONTIN (NDA 22-272) [Suspect]
     Indication: PAIN
     Dosage: 40 MG, BID
     Route: 048
     Dates: start: 2007, end: 20130416
  3. PERCOCET /00867901/ [Suspect]
     Indication: BREAKTHROUGH PAIN
     Dosage: 1 TABLET, QID PRN
     Route: 048
     Dates: start: 2006, end: 20130416
  4. PRISTIQ [Concomitant]
     Indication: PRODUCT USED FOR UNKNOWN INDICATION
     Dosage: 100 MG, DAILY
     Route: 048
     Dates: start: 2009
  5. LYRICA [Concomitant]
     Indication: NEURALGIA
     Dosage: 100 MG, TID
     Route: 048
  6. VALIUM                             /00017001/ [Concomitant]
     Indication: ANXIETY
     Dosage: 5 MG, TID
     Route: 048
     Dates: start: 201302
  7. TRICOR                             /00090101/ [Concomitant]
     Indication: BLOOD CHOLESTEROL INCREASED
     Dosage: 145 MG, DAILY
     Route: 048
     Dates: start: 2008
  8. VITAMIN D                          /00107901/ [Concomitant]
     Indication: PRODUCT USED FOR UNKNOWN INDICATION
     Dosage: 50000 UNIT, WEEKLY
     Route: 048
     Dates: start: 2006
  9. METHOTREXATE [Concomitant]
     Indication: PSORIASIS
     Dosage: 2-3 TABLETS;2 TABLETS ON TUES AND 3 TABLETS ON WED
     Route: 048
     Dates: start: 2012
  10. ADDERALL [Concomitant]
     Indication: DISTURBANCE IN ATTENTION
     Dosage: 20 MG, DAILY
     Route: 048
     Dates: start: 201302
  11. LUNESTA [Concomitant]
     Indication: INSOMNIA
     Dosage: 3 MG, HS
     Route: 048
     Dates: start: 2008
  12. TRIAMTERENE AND HYDROCHLOROTHIAZIDE [Concomitant]
     Indication: BLOOD PRESSURE
     Dosage: 0.5 TABLET, DAILY
     Route: 048
  13. CETIRIZINE [Concomitant]
     Indication: HYPERSENSITIVITY
     Dosage: 10 MG, DAILY
     Route: 048
  14. TRIAMCINOLONE [Concomitant]
     Indication: SINUS DISORDER
     Dosage: 55 MCG, DAILY
     Route: 045
  15. PENTOXIFYLLINE [Concomitant]
     Indication: PRODUCT USED FOR UNKNOWN INDICATION
     Dosage: 400 MG, TID
     Route: 048
  16. TESTOSTERONE [Concomitant]
     Indication: BLOOD TESTOSTERONE DECREASED
     Dosage: 200 MG/ML, EVERY 2 WEEKS
     Route: 030

REACTIONS (4)
  - Therapeutic response unexpected [Recovered/Resolved]
  - Weight decreased [Not Recovered/Not Resolved]
  - Diarrhoea [Not Recovered/Not Resolved]
  - Inadequate analgesia [Not Recovered/Not Resolved]
